FAERS Safety Report 23387265 (Version 1)
Quarter: 2024Q1

REPORT INFORMATION
  Report Type: Spontaneous
  Country: US (occurrence: None)
  Receive Date: 20240109
  Receipt Date: 20240109
  Transmission Date: 20240410
  Serious: Yes (Death)
  Sender: FDA-Public Use
  Company Number: None

PATIENT
  Age: 60 Year
  Sex: Female

DRUGS (1)
  1. MYCOPHENOLIC ACID [Suspect]
     Active Substance: MYCOPHENOLIC ACID
     Indication: Connective tissue disorder
     Dosage: OTHER FREQUENCY : 3 TABS BID;?
     Route: 048
     Dates: start: 202311, end: 202401

REACTIONS (1)
  - Death [None]

NARRATIVE: CASE EVENT DATE: 20240108
